FAERS Safety Report 11154965 (Version 1)
Quarter: 2015Q2

REPORT INFORMATION
  Report Type: Spontaneous
  Country: US (occurrence: None)
  Receive Date: 20150601
  Receipt Date: 20150601
  Transmission Date: 20150821
  Serious: Yes (Life-Threatening, Disabling, Other)
  Sender: FDA-Public Use
  Company Number: None

PATIENT
  Age: 78 Year
  Sex: Male
  Weight: 56.7 kg

DRUGS (1)
  1. CIPRO [Suspect]
     Active Substance: CIPROFLOXACIN HYDROCHLORIDE
     Indication: TYPHOID FEVER
     Dosage: ONE TABL:ET TWICE A DAY, BID, ORAL
     Route: 048
     Dates: start: 20150403, end: 20150412

REACTIONS (10)
  - Muscular weakness [None]
  - Gait disturbance [None]
  - Sputum discoloured [None]
  - Activities of daily living impaired [None]
  - Pyrexia [None]
  - Productive cough [None]
  - Pain in extremity [None]
  - Arthralgia [None]
  - Musculoskeletal pain [None]
  - Mobility decreased [None]

NARRATIVE: CASE EVENT DATE: 20150403
